FAERS Safety Report 5989476-6 (Version None)
Quarter: 2008Q4

REPORT INFORMATION
  Report Type: 
  Country: None (occurrence: None)
  Receive Date: 20081210
  Receipt Date: 20081201
  Transmission Date: 20090506
  Serious: Yes (Hospitalization, Disabling, Other)
  Sender: FDA-Public Use
  Company Number: IT-ABBOTT-06P-083-0340206-00

PATIENT
  Sex: Female

DRUGS (2)
  1. FULCRO [Suspect]
     Indication: METABOLIC SYNDROME
     Route: 048
     Dates: start: 20021010, end: 20031201
  2. PRINZIDE [Concomitant]
     Indication: DRUG USE FOR UNKNOWN INDICATION
     Dosage: 20/12,5  1 TAB PER DAY
     Route: 048

REACTIONS (32)
  - ANAEMIA [None]
  - ARTHRALGIA [None]
  - ASTHENIA [None]
  - BALANCE DISORDER [None]
  - BLOOD CHOLESTEROL INCREASED [None]
  - BLOOD TRIGLYCERIDES INCREASED [None]
  - DERMATITIS [None]
  - DISABILITY [None]
  - DIZZINESS [None]
  - GASTROINTESTINAL DISORDER [None]
  - GLUCOSE TOLERANCE DECREASED [None]
  - HIGH DENSITY LIPOPROTEIN DECREASED [None]
  - HYPERINSULINAEMIA [None]
  - HYPOVENTILATION [None]
  - INSULIN RESISTANCE [None]
  - LISTLESS [None]
  - METABOLIC SYNDROME [None]
  - MUSCLE RIGIDITY [None]
  - MYALGIA [None]
  - NAUSEA [None]
  - OBESITY [None]
  - OEDEMA PERIPHERAL [None]
  - PARAESTHESIA [None]
  - PETECHIAE [None]
  - POLYNEUROPATHY [None]
  - PSORIASIS [None]
  - PSYCHIATRIC SYMPTOM [None]
  - PURPURA [None]
  - SKIN DISORDER [None]
  - UNEVALUABLE EVENT [None]
  - URTICARIA [None]
  - VENOUS INSUFFICIENCY [None]
